FAERS Safety Report 24374978 (Version 1)
Quarter: 2024Q3

REPORT INFORMATION
  Report Type: Report from Study
  Country: US (occurrence: US)
  Receive Date: 20240927
  Receipt Date: 20240927
  Transmission Date: 20241016
  Serious: Yes (Hospitalization)
  Sender: ABBVIE
  Company Number: US-ABBVIE-5936814

PATIENT
  Sex: Female

DRUGS (1)
  1. VENCLEXTA [Suspect]
     Active Substance: VENETOCLAX
     Indication: Chronic lymphocytic leukaemia
     Route: 048
     Dates: start: 201911

REACTIONS (5)
  - Blood magnesium decreased [Unknown]
  - Abdominal discomfort [Unknown]
  - Pneumonia [Unknown]
  - Cardiac failure congestive [Unknown]
  - Blood sodium decreased [Unknown]
